FAERS Safety Report 23461192 (Version 1)
Quarter: 2024Q1

REPORT INFORMATION
  Report Type: Spontaneous
  Country: US (occurrence: None)
  Receive Date: 20240130
  Receipt Date: 20240130
  Transmission Date: 20240409
  Serious: Yes (Other)
  Sender: FDA-Public Use
  Company Number: None

PATIENT
  Age: 67 Year
  Sex: Male
  Weight: 69.75 kg

DRUGS (2)
  1. CIPRO [Suspect]
     Active Substance: CIPROFLOXACIN HYDROCHLORIDE
     Indication: Diverticulitis
     Dates: start: 20240116, end: 20240122
  2. LOSARTAN [Concomitant]
     Active Substance: LOSARTAN

REACTIONS (8)
  - Anxiety [None]
  - Agitation [None]
  - Syncope [None]
  - Asthenia [None]
  - Musculoskeletal disorder [None]
  - Hypertension [None]
  - Tendon pain [None]
  - Tendon disorder [None]

NARRATIVE: CASE EVENT DATE: 20240122
